FAERS Safety Report 10979133 (Version 1)
Quarter: 2015Q1

REPORT INFORMATION
  Report Type: Spontaneous
  Country: US (occurrence: None)
  Receive Date: 20150227
  Receipt Date: 20150227
  Transmission Date: 20150721
  Serious: Yes (Other)
  Sender: FDA-Public Use
  Company Number: LMI-2014-00561

PATIENT
  Age: 69 Year
  Sex: Female
  Weight: 90 kg

DRUGS (7)
  1. GLYBURIDE. [Concomitant]
     Active Substance: GLYBURIDE
  2. ASA (ACETYLICYLIC ACID) [Concomitant]
  3. DEFINITY [Suspect]
     Active Substance: PERFLUTREN
     Indication: STRESS ECHOCARDIOGRAM
     Dosage: 2ML DEFINITY DILUTED IN 8ML PRESERVATIVE FREE NORMAL SALINE (3ML, 1 IN 1 D)
     Route: 040
     Dates: start: 20141218, end: 20141218
  4. DEFINITY [Suspect]
     Active Substance: PERFLUTREN
     Indication: STRESS ECHOCARDIOGRAM
     Dosage: 2ML DEFINITY DILUTED IN 8ML PRESERVATIVE FREE NORMAL SALINE (2ML, 1 IN 1 D)
     Route: 040
     Dates: start: 20141218, end: 20141218
  5. HYDROCHLORTHIAZIDE [Concomitant]
     Active Substance: HYDROCHLOROTHIAZIDE
  6. METFORMIN [Concomitant]
     Active Substance: METFORMIN HYDROCHLORIDE
  7. NORVASC [Concomitant]
     Active Substance: AMLODIPINE BESYLATE

REACTIONS (5)
  - Oxygen saturation decreased [None]
  - Neck pain [None]
  - Blood pressure increased [None]
  - Rash erythematous [None]
  - Nervousness [None]

NARRATIVE: CASE EVENT DATE: 20141218
